FAERS Safety Report 23480767 (Version 2)
Quarter: 2024Q2

REPORT INFORMATION
  Report Type: Spontaneous
  Country: US (occurrence: US)
  Receive Date: 20240205
  Receipt Date: 20240421
  Transmission Date: 20240716
  Serious: No
  Sender: FDA-Public Use
  Company Number: US-GSKCCFUS-Case-01902053_AE-106058

PATIENT
  Age: 24 Year
  Sex: Male
  Weight: 126 kg

DRUGS (1)
  1. LAMICTAL [Suspect]
     Active Substance: LAMOTRIGINE
     Indication: Product used for unknown indication
     Dosage: 50 MG, BID
     Route: 048
     Dates: start: 20231205, end: 20240127

REACTIONS (4)
  - Rash pruritic [Not Recovered/Not Resolved]
  - Arthropod bite [Unknown]
  - Swelling [Unknown]
  - Skin lesion [Unknown]

NARRATIVE: CASE EVENT DATE: 20240107
